FAERS Safety Report 20511347 (Version 1)
Quarter: 2022Q1

REPORT INFORMATION
  Report Type: Spontaneous
  Country: US (occurrence: US)
  Receive Date: 20220224
  Receipt Date: 20220224
  Transmission Date: 20220424
  Serious: No
  Sender: FDA-Public Use
  Company Number: US-GLAXOSMITHKLINE-USCH2022007338

PATIENT
  Age: 66 Year
  Sex: Female

DRUGS (1)
  1. ABREVA [Suspect]
     Active Substance: DOCOSANOL
     Indication: Oral herpes
     Dosage: UNK
     Dates: start: 20220128, end: 20220214

REACTIONS (1)
  - Therapeutic product effect delayed [Recovered/Resolved]

NARRATIVE: CASE EVENT DATE: 20220128
